FAERS Safety Report 4303111-4 (Version None)
Quarter: 2004Q1

REPORT INFORMATION
  Report Type: 
  Country: None (occurrence: None)
  Receive Date: 20040224
  Receipt Date: 20040109
  Transmission Date: 20041129
  Serious: Yes (Life-Threatening)
  Sender: FDA-Public Use
  Company Number: CA-ROCHE-355549

PATIENT
  Age: 92 Year
  Sex: Female
  Weight: 60.4 kg

DRUGS (17)
  1. TAMIFLU [Suspect]
     Indication: INFLUENZA
     Route: 048
     Dates: start: 20031225, end: 20031231
  2. COUMADIN [Concomitant]
     Indication: ATRIAL FIBRILLATION
     Dosage: STRENGTH REPORTED AS 2 AND 3 MG TABLETS. DOSE ACCORDING TO INR.
     Route: 048
     Dates: start: 20010915
  3. OXYGEN [Concomitant]
  4. DIGOXIN [Concomitant]
  5. VASOTEC [Concomitant]
  6. VITAMIN CAP [Concomitant]
  7. DOCUSATE SODIUM [Concomitant]
  8. BISACODYL [Concomitant]
     Dosage: TAKEN AT NIGHT.
  9. FUROSEMIDE [Concomitant]
  10. TRENTAL [Concomitant]
  11. PARIET [Concomitant]
  12. VITAMIN C [Concomitant]
  13. ZINC GLUCONATE [Concomitant]
  14. DOMPERIDONE [Concomitant]
     Dosage: TAKEN BEFORE MEALS.
  15. DIDROCAL [Concomitant]
  16. DURAGESIC [Concomitant]
  17. ACETAMINOPHEN [Concomitant]

REACTIONS (1)
  - INTERNATIONAL NORMALISED RATIO INCREASED [None]
